FAERS Safety Report 15386049 (Version 1)
Quarter: 2018Q4

REPORT INFORMATION
  Report Type: Spontaneous
  Country: FR (occurrence: FR)
  Receive Date: 20180914
  Receipt Date: 20180914
  Transmission Date: 20190204
  Serious: Yes (Death)
  Sender: FDA-Public Use
  Company Number: FR-PFIZER INC-2018367812

PATIENT
  Age: 73 Year
  Sex: Female
  Weight: 86.4 kg

DRUGS (11)
  1. ZERBAXA [Suspect]
     Active Substance: CEFTOLOZANE SULFATE\TAZOBACTAM SODIUM
     Indication: LUNG INFECTION
     Dosage: 500 MG, EVERY 8 HOURS
     Route: 042
     Dates: start: 20180804, end: 20180816
  2. FUMAFER [Suspect]
     Active Substance: FERROUS FUMARATE
     Indication: IRON DEFICIENCY
     Dosage: 33 MG, 1X/DAY
     Route: 048
     Dates: start: 20180717, end: 20180817
  3. VANCOMYCIN HCL [Suspect]
     Active Substance: VANCOMYCIN HYDROCHLORIDE
     Indication: LUNG INFECTION
     Dosage: 2000 MG, 1X/DAY
     Route: 042
     Dates: start: 20180730, end: 20180816
  4. NEURONTIN [Suspect]
     Active Substance: GABAPENTIN
     Indication: NEURALGIA
     Dosage: 100 MG, EVERY 8 HOURS
     Route: 048
     Dates: start: 20180802, end: 20180816
  5. ABSTRAL [Suspect]
     Active Substance: FENTANYL CITRATE
     Indication: PAIN
     Dosage: 100 UG, EVERY 12 HOURS
     Route: 060
     Dates: start: 20180730, end: 20180817
  6. TOBRAMYCINE [TOBRAMYCIN] [Suspect]
     Active Substance: TOBRAMYCIN
     Indication: LUNG INFECTION
     Dosage: 450 MG, 1X/DAY
     Route: 042
     Dates: start: 20180803, end: 20180813
  7. TRAMADOL HCL [Suspect]
     Active Substance: TRAMADOL HYDROCHLORIDE
     Indication: PAIN
     Dosage: 100 MG, EVERY 8 HOURS
     Route: 048
     Dates: start: 20180725, end: 20180816
  8. NORADRENALINE HOSPIRA [Suspect]
     Active Substance: NOREPINEPHRINE BITARTRATE
     Indication: SUPPORTIVE CARE
     Dosage: 100 MG, 1X/DAY
     Route: 042
     Dates: start: 20180802, end: 20180817
  9. ATARAX [Suspect]
     Active Substance: HYDROXYZINE HYDROCHLORIDE
     Indication: ANXIETY
     Dosage: 100 MG, 1X/DAY
     Route: 042
     Dates: start: 20180730, end: 20180815
  10. KARDEGIC [Suspect]
     Active Substance: ASPIRIN DL-LYSINE
     Indication: ISCHAEMIC HEART DISEASE PROPHYLAXIS
     Dosage: 160 MG, 1X/DAY
     Route: 048
     Dates: start: 20180504, end: 20180816
  11. DEROXAT [Suspect]
     Active Substance: PAROXETINE HYDROCHLORIDE
     Indication: DEPRESSION
     Dosage: 20 MG, 1X/DAY
     Route: 048
     Dates: start: 20180618, end: 20180816

REACTIONS (3)
  - Encephalopathy [Fatal]
  - Renal failure [Fatal]
  - Condition aggravated [Fatal]

NARRATIVE: CASE EVENT DATE: 20180811
